FAERS Safety Report 12658116 (Version 1)
Quarter: 2016Q3

REPORT INFORMATION
  Report Type: Spontaneous
  Country: US (occurrence: US)
  Receive Date: 20160817
  Receipt Date: 20160817
  Transmission Date: 20161109
  Serious: Yes (Other)
  Sender: FDA-Public Use
  Company Number: US-ROCHE-1813435

PATIENT
  Sex: Female

DRUGS (1)
  1. ACTEMRA [Suspect]
     Active Substance: TOCILIZUMAB
     Indication: RHEUMATOID ARTHRITIS
     Route: 065

REACTIONS (6)
  - Arteriosclerosis [Unknown]
  - Cystitis [Unknown]
  - Coronary artery disease [Unknown]
  - Blood cholesterol increased [Unknown]
  - Inflammation [Unknown]
  - Pain [Unknown]
